FAERS Safety Report 4389810-0 (Version None)
Quarter: 2004Q2

REPORT INFORMATION
  Report Type: 
  Country: None (occurrence: None)
  Receive Date: 20040630
  Receipt Date: 20040616
  Transmission Date: 20050107
  Serious: Yes (Death, Life-Threatening, Hospitalization)
  Sender: FDA-Public Use
  Company Number: 2004036844

PATIENT
  Age: 25 Year
  Sex: Male
  Weight: 65 kg

DRUGS (5)
  1. VFEND [Suspect]
     Indication: FUNGAL INFECTION
     Dosage: 800 MG (400 MG, 2 IN 1 D), INTRAVENOUS
     Route: 042
     Dates: start: 20040406, end: 20040429
  2. CASPOFUNGIN (CASPOFUNGIN) [Concomitant]
  3. PIPERACILLIN/TAZOBACTAM (PIPERACILLIN ) [Concomitant]
  4. LEVOFLOXACIN [Concomitant]
  5. TEICOPLANIN (TEICOPLANIN) [Concomitant]

REACTIONS (6)
  - ACUTE MYOCARDIAL INFARCTION [None]
  - CONDITION AGGRAVATED [None]
  - HEPATITIS CHOLESTATIC [None]
  - HEPATITIS TOXIC [None]
  - RESPIRATORY FAILURE [None]
  - VENOOCCLUSIVE LIVER DISEASE [None]
